FAERS Safety Report 25950123 (Version 2)
Quarter: 2025Q4

REPORT INFORMATION
  Report Type: Report from Study
  Country: CA (occurrence: CA)
  Receive Date: 20251022
  Receipt Date: 20251103
  Transmission Date: 20260117
  Serious: Yes (Other)
  Sender: JOHNSON AND JOHNSON
  Company Number: CA-JNJFOC-20251024254

PATIENT
  Age: 71 Year
  Sex: Male

DRUGS (1)
  1. SIMPONI [Suspect]
     Active Substance: GOLIMUMAB
     Indication: Ankylosing spondylitis
     Route: 058
     Dates: start: 20210304, end: 20250926

REACTIONS (4)
  - Squamous cell carcinoma [Not Recovered/Not Resolved]
  - Prostatomegaly [Unknown]
  - Injection site mass [Not Recovered/Not Resolved]
  - Sinusitis [Recovered/Resolved]

NARRATIVE: CASE EVENT DATE: 20250901
